FAERS Safety Report 7493286-0 (Version None)
Quarter: 2011Q2

REPORT INFORMATION
  Report Type: 
  Country: None (occurrence: None)
  Receive Date: 20110520
  Receipt Date: 20110406
  Transmission Date: 20111010
  Serious: Yes (Hospitalization)
  Sender: FDA-Public Use
  Company Number: US-BAYER-201037677NA

PATIENT
  Sex: Female
  Weight: 49.887 kg

DRUGS (9)
  1. KEFLEX [Concomitant]
  2. YASMIN [Suspect]
     Indication: ACNE
     Dosage: UNK
     Dates: start: 20010101, end: 20030101
  3. DROSPIRENONE AND ETHINYL ESTRADIOL [Suspect]
     Indication: ACNE
     Dosage: UNK
     Dates: start: 20010101, end: 20030101
  4. PHYTONADIONE [Concomitant]
     Dosage: 5 MG, UNK
     Route: 048
  5. YAZ [Suspect]
     Indication: ACNE
     Dosage: UNK
     Dates: start: 20010101, end: 20030101
  6. LEXAPRO [Concomitant]
  7. NEURONTIN [Concomitant]
  8. DEMEROL [Concomitant]
     Dosage: UNK
     Route: 042
     Dates: start: 20080119, end: 20080119
  9. PLAQUENIL [Concomitant]

REACTIONS (1)
  - DEEP VEIN THROMBOSIS [None]
